FAERS Safety Report 8486978-8 (Version None)
Quarter: 2012Q3

REPORT INFORMATION
  Report Type: 
  Country: None (occurrence: None)
  Receive Date: 20120704
  Receipt Date: 20120626
  Transmission Date: 20120928
  Serious: Yes (Hospitalization, Other)
  Sender: FDA-Public Use
  Company Number: PHHY2012BR056278

PATIENT
  Sex: Male
  Weight: 64 kg

DRUGS (10)
  1. FORMOTEROL FUMARATE [Suspect]
     Indication: CHRONIC OBSTRUCTIVE PULMONARY DISEASE
  2. BEROTEC [Concomitant]
     Indication: CHRONIC OBSTRUCTIVE PULMONARY DISEASE
     Dosage: 4 NEBULIZATIONS A DAY
  3. SPIRIVA [Concomitant]
     Indication: CHRONIC OBSTRUCTIVE PULMONARY DISEASE
     Dosage: 1 INHALATION EVERY 12 HOURS
  4. BEROTEC [Concomitant]
     Indication: ASTHMA
  5. ATROVENT [Concomitant]
     Indication: CHRONIC OBSTRUCTIVE PULMONARY DISEASE
     Dosage: 4 NEBULIZATIONS A DAY
  6. ATROVENT [Concomitant]
     Indication: ASTHMA
  7. SPIRIVA [Concomitant]
     Indication: ASTHMA
  8. FORMOTEROL FUMARATE [Suspect]
     Indication: ASTHMA
     Dosage: 1 INHALATION (12/400MCG) EVERY 12 HRS
  9. RESPIMAT [Concomitant]
     Indication: CHRONIC OBSTRUCTIVE PULMONARY DISEASE
     Dosage: 1 INHALATION EVERY 12 HOURS
  10. RESPIMAT [Concomitant]
     Indication: ASTHMA

REACTIONS (5)
  - RESPIRATORY TRACT INFECTION BACTERIAL [None]
  - NASOPHARYNGITIS [None]
  - CHRONIC OBSTRUCTIVE PULMONARY DISEASE [None]
  - PROCEDURAL COMPLICATION [None]
  - ASTHMA [None]
